FAERS Safety Report 21392116 (Version 1)
Quarter: 2022Q3

REPORT INFORMATION
  Report Type: Spontaneous
  Country: US (occurrence: None)
  Receive Date: 20220928
  Receipt Date: 20220928
  Transmission Date: 20221026
  Serious: Yes (Hospitalization)
  Sender: FDA-Public Use
  Company Number: None

PATIENT
  Age: 59 Year
  Sex: Female
  Weight: 56.7 kg

DRUGS (1)
  1. STELARA [Suspect]
     Active Substance: USTEKINUMAB

REACTIONS (7)
  - Infusion related reaction [None]
  - Feeling hot [None]
  - Blood pressure increased [None]
  - Urticaria [None]
  - Hypokalaemia [None]
  - Bacterial test positive [None]
  - White blood cell disorder [None]

NARRATIVE: CASE EVENT DATE: 20220927
